FAERS Safety Report 21794212 (Version 1)
Quarter: 2022Q4

REPORT INFORMATION
  Report Type: Spontaneous
  Country: US (occurrence: None)
  Receive Date: 20221228
  Receipt Date: 20221228
  Transmission Date: 20230113
  Serious: No
  Sender: FDA-Public Use
  Company Number: None

PATIENT
  Age: 59 Year
  Sex: Male
  Weight: 103.95 kg

DRUGS (5)
  1. XTANDI [Suspect]
     Active Substance: ENZALUTAMIDE
     Indication: Prostate cancer
     Dosage: FREQUENCY : DAILY;?
     Route: 048
     Dates: start: 20220307
  2. ASPIRIN [Concomitant]
     Active Substance: ASPIRIN
     Dates: start: 20220304
  3. BICALUTAMIDE [Concomitant]
     Active Substance: BICALUTAMIDE
     Dates: start: 20220303
  4. temazepam 15mg [Concomitant]
     Dates: start: 20221028
  5. VITAMIN D [Concomitant]
     Active Substance: VITAMIN D NOS
     Dates: start: 20220303

REACTIONS (2)
  - Arthralgia [None]
  - Oedema [None]

NARRATIVE: CASE EVENT DATE: 20221227
